FAERS Safety Report 4536639-2 (Version None)
Quarter: 2004Q4

REPORT INFORMATION
  Report Type: 
  Country: None (occurrence: None)
  Receive Date: 20041222
  Receipt Date: 20041222
  Transmission Date: 20050328
  Serious: Yes (Life-Threatening)
  Sender: FDA-Public Use
  Company Number: None

PATIENT
  Age: 76 Year
  Sex: Female
  Weight: 69.9 kg

DRUGS (2)
  1. TAMOXIFEN CITRATE [Suspect]
     Indication: BREAST CANCER
     Dosage: 20 MG DAILY ORAL
     Route: 048
     Dates: start: 19980901, end: 20030901
  2. TAMOXIFEN CITRATE [Suspect]
     Indication: METASTASES TO LYMPH NODES
     Dosage: 20 MG DAILY ORAL
     Route: 048
     Dates: start: 19980901, end: 20030901

REACTIONS (1)
  - OVARIAN CANCER [None]
